FAERS Safety Report 8457131-9 (Version None)
Quarter: 2012Q2

REPORT INFORMATION
  Report Type: 
  Country: None (occurrence: None)
  Receive Date: 20120615
  Receipt Date: 20120601
  Transmission Date: 20120825
  Serious: Yes (Hospitalization, Disabling, Other)
  Sender: FDA-Public Use
  Company Number: 2012P1037615

PATIENT
  Age: 75 Year
  Sex: Female
  Weight: 50.3493 kg

DRUGS (3)
  1. FENTANYL-100 [Suspect]
     Indication: BACK PAIN
     Dosage: 1 PATCH;Q72HR;TDER, 1 PATCH;Q72HR;TDER
     Route: 062
     Dates: start: 20070101, end: 20120101
  2. FENTANYL-100 [Suspect]
     Indication: BACK PAIN
     Dosage: 1 PATCH;Q72HR;TDER, 1 PATCH;Q72HR;TDER
     Route: 062
     Dates: start: 20120601
  3. FENTANYL-75 [Suspect]
     Indication: BACK PAIN
     Dosage: 1 PATCH;Q72HR;TDER
     Route: 062
     Dates: start: 20120101, end: 20120101

REACTIONS (14)
  - DECREASED APPETITE [None]
  - PAIN [None]
  - BLOOD PRESSURE ABNORMAL [None]
  - MENTAL DISORDER [None]
  - DRUG INEFFECTIVE [None]
  - SPINAL FRACTURE [None]
  - KIDNEY INFECTION [None]
  - PARKINSON'S DISEASE [None]
  - PRODUCT ADHESION ISSUE [None]
  - BACK PAIN [None]
  - FALL [None]
  - WEIGHT DECREASED [None]
  - GAIT DISTURBANCE [None]
  - ABNORMAL BEHAVIOUR [None]
